FAERS Safety Report 6861411-8 (Version None)
Quarter: 2010Q3

REPORT INFORMATION
  Report Type: 
  Country: None (occurrence: None)
  Receive Date: 20100716
  Receipt Date: 20100703
  Transmission Date: 20110219
  Serious: Yes (Hospitalization, Other)
  Sender: FDA-Public Use
  Company Number: 2010AP001380

PATIENT
  Age: 70 Year
  Sex: Female

DRUGS (3)
  1. RISPERIDONE [Suspect]
     Indication: SCHIZOPHRENIA, PARANOID TYPE
     Dosage: 0.5 MG; BID, 04 MG;QD
  2. GABAPENTIN [Concomitant]
  3. TIOTIXENE [Concomitant]

REACTIONS (2)
  - CONDITION AGGRAVATED [None]
  - HYPERTRIGLYCERIDAEMIA [None]
